FAERS Safety Report 8373131-1 (Version None)
Quarter: 2012Q2

REPORT INFORMATION
  Report Type: 
  Country: None (occurrence: None)
  Receive Date: 20120521
  Receipt Date: 20120518
  Transmission Date: 20120825
  Serious: Yes (Other)
  Sender: FDA-Public Use
  Company Number: US-PFIZER INC-2012121444

PATIENT
  Sex: Female
  Weight: 77.551 kg

DRUGS (1)
  1. ARTHROTEC [Suspect]
     Indication: BURSITIS
     Dosage: 75/200 MG/MCG, 1X/DAY
     Route: 048
     Dates: start: 20120502, end: 20120502

REACTIONS (2)
  - PAIN [None]
  - HAEMATEMESIS [None]
